FAERS Safety Report 6003750-9 (Version None)
Quarter: 2008Q4

REPORT INFORMATION
  Report Type: 
  Country: None (occurrence: None)
  Receive Date: 20081212
  Receipt Date: 20081124
  Transmission Date: 20090506
  Serious: Yes (Other)
  Sender: FDA-Public Use
  Company Number: GB-2008-1155

PATIENT
  Sex: Female

DRUGS (2)
  1. NAVELBINE [Suspect]
     Indication: BREAST CANCER
     Dates: end: 20081111
  2. AVASTIN [Suspect]
     Indication: BREAST CANCER

REACTIONS (1)
  - PHLEBITIS [None]
